FAERS Safety Report 21320387 (Version 2)
Quarter: 2022Q4

REPORT INFORMATION
  Report Type: Spontaneous
  Country: US (occurrence: US)
  Receive Date: 20220911
  Receipt Date: 20221221
  Transmission Date: 20230113
  Serious: No
  Sender: FDA-Public Use
  Company Number: US-AMGEN-USASP2022152723

PATIENT
  Age: 14 Year
  Sex: Male

DRUGS (3)
  1. ENBREL [Suspect]
     Active Substance: ETANERCEPT
     Indication: Chronic recurrent multifocal osteomyelitis
     Dosage: UNK
     Route: 065
  2. ENBREL [Suspect]
     Active Substance: ETANERCEPT
     Indication: Off label use
     Dosage: UNK
     Route: 065
  3. HUMIRA [Concomitant]
     Active Substance: ADALIMUMAB
     Indication: Product used for unknown indication
     Dosage: UNK
     Route: 065

REACTIONS (24)
  - Alanine aminotransferase increased [Unknown]
  - Red blood cell sedimentation rate increased [Unknown]
  - White blood cell count increased [Unknown]
  - Platelet count increased [Unknown]
  - Neutrophil count increased [Unknown]
  - Granulocyte count increased [Unknown]
  - Off label use [Unknown]
  - Injection site urticaria [Unknown]
  - Red blood cell count decreased [Unknown]
  - C-reactive protein increased [Unknown]
  - Mean cell haemoglobin concentration decreased [Unknown]
  - Haemoglobin decreased [Unknown]
  - Haematocrit decreased [Unknown]
  - Mean cell volume increased [Unknown]
  - Monocyte count increased [Unknown]
  - Lymphocyte count increased [Unknown]
  - Eosinophil count increased [Unknown]
  - Eosinophil count decreased [Unknown]
  - Blood chloride increased [Unknown]
  - Blood chloride increased [Unknown]
  - Carbon dioxide decreased [Unknown]
  - Blood glucose increased [Unknown]
  - Blood creatinine decreased [Unknown]
  - Blood urea nitrogen/creatinine ratio increased [Unknown]

NARRATIVE: CASE EVENT DATE: 20220730
